FAERS Safety Report 22388035 (Version 3)
Quarter: 2023Q2

REPORT INFORMATION
  Report Type: Report from Study
  Country: CA (occurrence: CA)
  Receive Date: 20230531
  Receipt Date: 20230630
  Transmission Date: 20230721
  Serious: Yes (Hospitalization, Other)
  Sender: FDA-Public Use
  Company Number: CA-BAUSCH-BL-2023-007683

PATIENT
  Sex: Female

DRUGS (4)
  1. CONTRAVE [Suspect]
     Active Substance: BUPROPION HYDROCHLORIDE\NALTREXONE HYDROCHLORIDE
     Indication: Weight control
     Dosage: 90/8 MG, 1 TABLET
     Route: 048
     Dates: start: 2023, end: 2023
  2. CONTRAVE [Suspect]
     Active Substance: BUPROPION HYDROCHLORIDE\NALTREXONE HYDROCHLORIDE
     Dosage: 90/8 MG, SECOND WEEK
     Route: 048
     Dates: start: 2023, end: 2023
  3. CONTRAVE [Suspect]
     Active Substance: BUPROPION HYDROCHLORIDE\NALTREXONE HYDROCHLORIDE
     Dosage: 90/8MG, 3 TABLETS
     Route: 048
     Dates: start: 2023, end: 2023
  4. CONTRAVE [Suspect]
     Active Substance: BUPROPION HYDROCHLORIDE\NALTREXONE HYDROCHLORIDE
     Dosage: 90/8 MG, 4 PILLS (2 DOSAGE FORMS, 1 IN 12 HR )
     Route: 048
     Dates: start: 2023, end: 20230509

REACTIONS (26)
  - Near death experience [Unknown]
  - Noninfective encephalitis [Unknown]
  - Hospitalisation [Unknown]
  - Metabolic surgery [Unknown]
  - Haematemesis [Recovered/Resolved]
  - Cerebrospinal fluid leakage [Recovered/Resolved]
  - Syncope [Unknown]
  - Migraine [Unknown]
  - Brain scan abnormal [Unknown]
  - Throat irritation [Recovered/Resolved]
  - Crying [Unknown]
  - Discoloured vomit [Unknown]
  - Nail discolouration [Unknown]
  - Impaired work ability [Unknown]
  - Visual impairment [Recovered/Resolved]
  - Oropharyngeal pain [Unknown]
  - Depressed mood [Unknown]
  - Mood altered [Recovered/Resolved]
  - Vomiting [Recovered/Resolved]
  - Memory impairment [Unknown]
  - Heart rate increased [Recovered/Resolved]
  - Headache [Recovered/Resolved]
  - Tremor [Recovered/Resolved]
  - Ill-defined disorder [Unknown]
  - Illness [Unknown]
  - Therapy cessation [Unknown]

NARRATIVE: CASE EVENT DATE: 20230101
